FAERS Safety Report 15668585 (Version 1)
Quarter: 2018Q4

REPORT INFORMATION
  Report Type: Spontaneous
  Country: US (occurrence: US)
  Receive Date: 20181129
  Receipt Date: 20181129
  Transmission Date: 20190205
  Serious: No
  Sender: FDA-Public Use
  Company Number: US-ASTRAZENECA-2018SF43694

PATIENT
  Age: 897 Month
  Sex: Female
  Weight: 67.1 kg

DRUGS (2)
  1. LEVEMIR [Concomitant]
     Active Substance: INSULIN DETEMIR
     Indication: TYPE 2 DIABETES MELLITUS
     Dosage: TWO TIMES A DAY, 30 UNITS IN THE MORNING, AND 25 UNITS AT NIGHT
     Route: 058
     Dates: start: 201804
  2. BYDUREON BCISE [Suspect]
     Active Substance: EXENATIDE
     Indication: TYPE 2 DIABETES MELLITUS
     Route: 058
     Dates: start: 201804

REACTIONS (2)
  - Injection site haemorrhage [Recovered/Resolved]
  - Underdose [Recovered/Resolved]

NARRATIVE: CASE EVENT DATE: 201806
